FAERS Safety Report 4835472-1 (Version None)
Quarter: 2005Q4

REPORT INFORMATION
  Report Type: 
  Country: None (occurrence: None)
  Receive Date: 20051122
  Receipt Date: 20051122
  Transmission Date: 20060501
  Serious: Yes (Hospitalization)
  Sender: FDA-Public Use
  Company Number: None

PATIENT
  Sex: Male
  Weight: 59.6 kg

DRUGS (2)
  1. CLINDAMYCIN [Suspect]
     Indication: INFECTION
     Dosage: 300MG    Q6H    PO
     Route: 048
  2. COMBIVIR [Suspect]
     Indication: HIV INFECTION
     Dosage: 150-300MG   Q12H   PO
     Route: 048

REACTIONS (1)
  - DIARRHOEA [None]
